FAERS Safety Report 7154721-0 (Version None)
Quarter: 2010Q4

REPORT INFORMATION
  Report Type: 
  Country: None (occurrence: None)
  Receive Date: 20101214
  Receipt Date: 20091105
  Transmission Date: 20110411
  Serious: No
  Sender: FDA-Public Use
  Company Number: US-AMGEN-KDL373173

PATIENT

DRUGS (6)
  1. ENBREL [Suspect]
     Indication: PRODUCT USED FOR UNKNOWN INDICATION
     Dosage: 50 MG, QWK
     Route: 058
  2. SULFASALAZINE [Concomitant]
     Dosage: 500 MG, UNK
     Route: 048
  3. DICLOFENAC SODIUM [Concomitant]
     Dosage: 75 MG, UNK
     Route: 048
  4. OMEPRAZOLE [Concomitant]
     Dosage: 10 MG, UNK
     Route: 048
  5. PSEUDOEPHEDRINE HYDROCHLORIDE [Concomitant]
     Dosage: 240 MG, UNK
     Route: 048
  6. ACETAMINOPHEN [Concomitant]
     Dosage: 325 MG, UNK
     Route: 048

REACTIONS (2)
  - INFLUENZA [None]
  - NASOPHARYNGITIS [None]
